FAERS Safety Report 5913530-8 (Version None)
Quarter: 2008Q4

REPORT INFORMATION
  Report Type: 
  Country: None (occurrence: None)
  Receive Date: 20081009
  Receipt Date: 20080815
  Transmission Date: 20090506
  Serious: No
  Sender: FDA-Public Use
  Company Number: US-BAYER-200813468BCC

PATIENT
  Age: 74 Year
  Sex: Female
  Weight: 125 kg

DRUGS (5)
  1. ALEVE [Suspect]
     Indication: ARTHRALGIA
     Dosage: TOTAL DAILY DOSE: 440 MG  UNIT DOSE: 220 MG
     Route: 048
     Dates: start: 20080812
  2. ZESTRIL [Concomitant]
  3. SYNTHROID [Concomitant]
  4. MICRO-K [Concomitant]
  5. LASIX [Concomitant]

REACTIONS (1)
  - ABDOMINAL PAIN UPPER [None]
